FAERS Safety Report 24201524 (Version 1)
Quarter: 2024Q3

REPORT INFORMATION
  Report Type: Other
  Country: GB (occurrence: GB)
  Receive Date: 20240812
  Receipt Date: 20240812
  Transmission Date: 20241016
  Serious: Yes (Other)
  Sender: GLENMARK
  Company Number: GB-MHRA-TPP19250208C9433810YC1721401292676

PATIENT

DRUGS (5)
  1. EZETIMIBE [Suspect]
     Active Substance: EZETIMIBE
     Indication: Ill-defined disorder
     Dosage: 1 DOSAGE FORM, OD
     Route: 065
     Dates: start: 20240507, end: 20240719
  2. ATORVASTATIN [Suspect]
     Active Substance: ATORVASTATIN
     Indication: Product used for unknown indication
     Dosage: 20 MILLIGRAM
     Route: 065
  3. EASYHALER [Concomitant]
     Indication: Ill-defined disorder
     Dosage: 1 DOSAGE FORM, PRN (INHALE 1 DOSE AS NEEDED)
     Route: 065
     Dates: start: 20240615, end: 20240616
  4. ACLIDINIUM BROMIDE\FORMOTEROL FUMARATE [Concomitant]
     Active Substance: ACLIDINIUM BROMIDE\FORMOTEROL FUMARATE
     Indication: Ill-defined disorder
     Dosage: 1 DOSAGE FORM, BID
     Dates: start: 20220614
  5. ALBUTEROL [Concomitant]
     Active Substance: ALBUTEROL
     Indication: Ill-defined disorder
     Dosage: UNK DOSAGE FORM, QID (INHALE 1-2 DOSES AS NEEDED UP TO FOUR TIMES A DAY)
     Dates: start: 20230116

REACTIONS (3)
  - Lymphadenopathy [Recovered/Resolved]
  - Testicular swelling [Unknown]
  - Rash [Unknown]
